FAERS Safety Report 7246057-4 (Version None)
Quarter: 2011Q1

REPORT INFORMATION
  Report Type: 
  Country: None (occurrence: None)
  Receive Date: 20110126
  Receipt Date: 20110120
  Transmission Date: 20110831
  Serious: Yes (Other)
  Sender: FDA-Public Use
  Company Number: CHPA2011US01361

PATIENT
  Age: 82 Year
  Sex: Female

DRUGS (3)
  1. LISINOPRIL [Concomitant]
     Indication: HYPERTENSION
     Dosage: UNK, UNK
     Route: 048
  2. ANTIBIOTICS [Concomitant]
  3. SLOW FE BROWN [Suspect]
     Indication: ANAEMIA
     Dosage: 284 MG, QD
     Route: 048
     Dates: start: 20101201

REACTIONS (4)
  - GASTRIC ULCER [None]
  - SENSORY DISTURBANCE [None]
  - DIZZINESS [None]
  - OVERDOSE [None]
